FAERS Safety Report 5021570-9 (Version None)
Quarter: 2006Q2

REPORT INFORMATION
  Report Type: 
  Country: None (occurrence: None)
  Receive Date: 20060608
  Receipt Date: 20060529
  Transmission Date: 20061013
  Serious: Yes (Other)
  Sender: FDA-Public Use
  Company Number: JP-ABBOTT-06P-087-0334627-00

PATIENT
  Age: 67 Year
  Sex: Male
  Weight: 63 kg

DRUGS (26)
  1. SEVOFLURANE [Suspect]
     Indication: MAINTENANCE OF ANAESTHESIA
     Route: 055
  2. SEVOFLURANE [Suspect]
     Route: 055
  3. EPHEDRINE HYDROCHLORIDE [Suspect]
     Indication: DRUG USE FOR UNKNOWN INDICATION
     Route: 065
  4. EPINEPHRINE [Suspect]
     Indication: DRUG USE FOR UNKNOWN INDICATION
     Route: 065
  5. FENTANYL [Suspect]
     Indication: DRUG USE FOR UNKNOWN INDICATION
     Route: 065
  6. PROPOFOL [Concomitant]
     Indication: INDUCTION OF ANAESTHESIA
     Route: 042
  7. ATROPINE SULFATE [Concomitant]
     Indication: PREMEDICATION
     Route: 030
  8. ATROPINE SULFATE [Concomitant]
     Indication: NEUROMUSCULAR BLOCKADE REVERSAL
     Route: 065
  9. ATROPINE SULFATE [Concomitant]
     Route: 065
  10. HYDROXYZINE HYDROCHLORIDE [Concomitant]
     Indication: PREMEDICATION
     Route: 030
  11. HYDROXYZINE HYDROCHLORIDE [Concomitant]
     Route: 065
  12. VECURONIUM BROMIDE [Concomitant]
     Indication: MUSCLE RELAXANT THERAPY
     Route: 065
  13. VECURONIUM BROMIDE [Concomitant]
     Route: 065
  14. VECURONIUM BROMIDE [Concomitant]
     Route: 065
  15. VECURONIUM BROMIDE [Concomitant]
     Route: 065
  16. NITROUS OXIDE W/ OXYGEN [Concomitant]
     Indication: MAINTENANCE OF ANAESTHESIA
     Route: 055
  17. NITROUS OXIDE W/ OXYGEN [Concomitant]
     Route: 065
  18. OXYGEN [Concomitant]
     Indication: MAINTENANCE OF ANAESTHESIA
     Route: 055
  19. OXYGEN [Concomitant]
     Route: 055
  20. MIDAZOLAM HCL [Concomitant]
     Indication: INDUCTION OF ANAESTHESIA
     Route: 065
  21. DILTIAZEM [Concomitant]
     Indication: BLOOD PRESSURE MANAGEMENT
     Route: 042
  22. DILTIAZEM [Concomitant]
     Route: 042
  23. DILTIAZEM [Concomitant]
     Route: 042
  24. DILTIAZEM [Concomitant]
     Route: 042
  25. OCTOCAINE WITH EPINEPHRINE [Concomitant]
     Indication: DRUG USE FOR UNKNOWN INDICATION
     Route: 065
  26. VAGOSTIGMINE [Concomitant]
     Indication: NEUROMUSCULAR BLOCKADE REVERSAL
     Route: 065

REACTIONS (4)
  - ANAESTHETIC COMPLICATION [None]
  - ARTERIOSPASM CORONARY [None]
  - BLOOD PRESSURE DECREASED [None]
  - VENTRICULAR FIBRILLATION [None]
